FAERS Safety Report 7585452-0 (Version None)
Quarter: 2011Q3

REPORT INFORMATION
  Report Type: 
  Country: None (occurrence: None)
  Receive Date: 20110701
  Receipt Date: 20110608
  Transmission Date: 20111222
  Serious: Yes (Hospitalization, Other)
  Sender: FDA-Public Use
  Company Number: US-BAYER-201017552NA

PATIENT
  Age: 25 Year
  Sex: Female
  Weight: 86.168 kg

DRUGS (8)
  1. PREVACID [Concomitant]
  2. CONTRACEPTIVES FOR TOPICAL USE [Concomitant]
  3. PRILOSEC [Concomitant]
  4. TRI LO SPRINTEC [Concomitant]
  5. YASMIN [Suspect]
     Indication: ORAL CONTRACEPTION
     Dosage: UNK UNK, QD
     Route: 048
     Dates: start: 20060101, end: 20090101
  6. OMEPRAZOLE [Concomitant]
  7. YAZ [Suspect]
     Indication: ORAL CONTRACEPTION
     Dosage: UNK UNK, QD
     Route: 048
     Dates: start: 20060101, end: 20090101
  8. LEVONORGESTREL + ETHINYL ESTRADIOL [Concomitant]
     Dosage: UNK

REACTIONS (4)
  - GALLBLADDER NON-FUNCTIONING [None]
  - CHOLECYSTITIS CHRONIC [None]
  - ORGAN FAILURE [None]
  - CHOLELITHIASIS [None]
